FAERS Safety Report 5528263-X (Version None)
Quarter: 2007Q4

REPORT INFORMATION
  Report Type: 
  Country: None (occurrence: None)
  Receive Date: 20071128
  Receipt Date: 20071116
  Transmission Date: 20080405
  Serious: Yes (Other)
  Sender: FDA-Public Use
  Company Number: JP-PFIZER INC-2007094090

PATIENT
  Age: 58 Year
  Sex: Female

DRUGS (6)
  1. DETRUSITOL SR [Suspect]
     Indication: HYPERTONIC BLADDER
     Dosage: DAILY DOSE:4MG
     Route: 048
  2. CINAL [Concomitant]
     Route: 048
  3. ADONA [Concomitant]
     Route: 048
     Dates: start: 20070319, end: 20070321
  4. TRANSAMIN [Concomitant]
     Route: 048
     Dates: start: 20070319, end: 20070324
  5. ALESION [Concomitant]
     Route: 048
  6. LENDORMIN [Concomitant]
     Route: 048

REACTIONS (1)
  - RASH [None]
